FAERS Safety Report 5912340-5 (Version None)
Quarter: 2008Q4

REPORT INFORMATION
  Report Type: 
  Country: None (occurrence: None)
  Receive Date: 20081008
  Receipt Date: 20080916
  Transmission Date: 20090506
  Serious: Yes (Death)
  Sender: FDA-Public Use
  Company Number: US-TEVA-166849USA

PATIENT
  Sex: Male
  Weight: 163.44 kg

DRUGS (12)
  1. CLOZAPINE [Suspect]
     Indication: SCHIZOPHRENIA, PARANOID TYPE
     Route: 048
     Dates: start: 20000601, end: 20080113
  2. CITALOPRAM HYDROBROMIDE [Interacting]
     Route: 048
  3. TIOTROPIUM BROMIDE [Concomitant]
     Dosage: HANDHALER, 1 CAPSULE INHALED IN THE MORNING
  4. OMEPRAZOLE [Concomitant]
  5. ATORVASTATIN CALCIUM [Concomitant]
  6. CITALOPRAM HYDROBROMIDE [Concomitant]
  7. NAPROXEN SODIUM [Concomitant]
     Dosage: 1-2 TABLETS TWICE AS DAY
  8. RISPERIDONE [Concomitant]
  9. ARIPIPRAZOLE [Concomitant]
  10. PERPHENAZINE [Concomitant]
  11. CALCIUM CARBONATE [Concomitant]
     Dosage: 2 TABLETS
  12. ACETAMINOPHEN [Concomitant]
     Dosage: 2 TABLETS EVERY 8 HOURS AS NEEDED
     Route: 048

REACTIONS (3)
  - DRUG INTERACTION [None]
  - DRUG TOXICITY [None]
  - UNRESPONSIVE TO STIMULI [None]
